FAERS Safety Report 22387578 (Version 1)
Quarter: 2023Q2

REPORT INFORMATION
  Report Type: Spontaneous
  Country: CN (occurrence: None)
  Receive Date: 20230531
  Receipt Date: 20230531
  Transmission Date: 20230721
  Serious: Yes (Other)
  Sender: FDA-Public Use
  Company Number: CN-ROCHE-3355704

PATIENT
  Sex: Female
  Weight: 48.6 kg

DRUGS (3)
  1. HERCEPTIN [Suspect]
     Active Substance: TRASTUZUMAB
     Indication: Radical mastectomy
     Route: 041
     Dates: start: 20230427, end: 20230427
  2. HERCEPTIN [Suspect]
     Active Substance: TRASTUZUMAB
     Route: 041
     Dates: start: 20230504, end: 20230504
  3. DOCETAXEL [Suspect]
     Active Substance: DOCETAXEL
     Indication: Radical mastectomy
     Route: 041
     Dates: start: 20230427, end: 20230427

REACTIONS (2)
  - Myelosuppression [Recovering/Resolving]
  - Mouth ulceration [Unknown]

NARRATIVE: CASE EVENT DATE: 20230505
